FAERS Safety Report 16653336 (Version 1)
Quarter: 2019Q3

REPORT INFORMATION
  Report Type: Spontaneous
  Country: CA (occurrence: CA)
  Receive Date: 20190731
  Receipt Date: 20190731
  Transmission Date: 20191004
  Serious: Yes (Life-Threatening, Other)
  Sender: FDA-Public Use
  Company Number: CA-TEVA-2019-CA-1084912

PATIENT
  Age: 33 Year
  Sex: Female
  Weight: 49 kg

DRUGS (1)
  1. MOXIFLOXACIN. [Suspect]
     Active Substance: MOXIFLOXACIN
     Indication: SINUSITIS
     Route: 048

REACTIONS (8)
  - Abdominal pain [Recovered/Resolved]
  - Diarrhoea [Recovered/Resolved]
  - Vomiting [Recovered/Resolved]
  - Heart rate increased [Recovered/Resolved]
  - Dyspnoea [Recovered/Resolved]
  - Generalised erythema [Recovered/Resolved]
  - Drug hypersensitivity [Recovered/Resolved]
  - Anaphylactic shock [Recovered/Resolved]
